FAERS Safety Report 7716624-X (Version None)
Quarter: 2011Q3

REPORT INFORMATION
  Report Type: 
  Country: None (occurrence: None)
  Receive Date: 20110829
  Receipt Date: 20110804
  Transmission Date: 20111222
  Serious: Yes (Hospitalization)
  Sender: FDA-Public Use
  Company Number: US-PFIZER INC-A020876

PATIENT
  Sex: Female

DRUGS (5)
  1. METABOLIFE [Suspect]
     Dosage: UNK
  2. PROZAC [Suspect]
  3. PHENTERMINE [Suspect]
  4. TESSALON [Suspect]
     Dosage: DAILY
  5. ZOLOFT [Suspect]

REACTIONS (3)
  - ATRIOVENTRICULAR BLOCK COMPLETE [None]
  - HYPERHIDROSIS [None]
  - SUICIDE ATTEMPT [None]
